FAERS Safety Report 10449462 (Version 2)
Quarter: 2014Q3

REPORT INFORMATION
  Report Type: Spontaneous
  Country: EG (occurrence: EG)
  Receive Date: 20140912
  Receipt Date: 20140912
  Transmission Date: 20150326
  Serious: Yes (Other)
  Sender: FDA-Public Use
  Company Number: EG-NOVOPROD-421805

PATIENT
  Age: 26 Year
  Sex: Female

DRUGS (3)
  1. ALDOMET [Concomitant]
     Active Substance: METHYLDOPA
     Indication: HYPERTENSION
     Dosage: UNK
     Route: 048
  2. FOLIC ACID. [Concomitant]
     Active Substance: FOLIC ACID
     Dosage: UNK
     Route: 048
  3. NOVOMIX 30 FLEXPEN [Suspect]
     Active Substance: INSULIN ASPART
     Indication: GESTATIONAL DIABETES
     Dosage: 15 IU, QD (10 IU BEFORE BREAKFAST AND 5 IU BEFORE DINNER)
     Route: 058
     Dates: start: 20140725, end: 20140828

REACTIONS (2)
  - Pre-eclampsia [Unknown]
  - Exposure during pregnancy [Unknown]
